FAERS Safety Report 6095943-X (Version None)
Quarter: 2009Q1

REPORT INFORMATION
  Report Type: 
  Country: None (occurrence: None)
  Receive Date: 20090227
  Receipt Date: 20080820
  Transmission Date: 20090719
  Serious: No
  Sender: FDA-Public Use
  Company Number: A0738852A

PATIENT
  Age: 49 Year
  Sex: Female

DRUGS (8)
  1. LAMICTAL [Suspect]
     Indication: BIPOLAR DISORDER
     Dosage: 200MG PER DAY
     Route: 048
     Dates: start: 20070101
  2. FENTANYL TRANSDERMAL SYSTEM [Concomitant]
  3. IBUPROFEN [Concomitant]
  4. XANAX [Concomitant]
  5. PROZAC [Concomitant]
  6. PERCOCET [Concomitant]
  7. INDERAL [Concomitant]
  8. DEXEDRINE [Concomitant]

REACTIONS (3)
  - MEMORY IMPAIRMENT [None]
  - PALPITATIONS [None]
  - VISION BLURRED [None]
